FAERS Safety Report 9913238 (Version 1)
Quarter: 2014Q1

REPORT INFORMATION
  Report Type: Spontaneous
  Country: US (occurrence: None)
  Receive Date: 20140218
  Receipt Date: 20140218
  Transmission Date: 20141002
  Serious: Yes (Other)
  Sender: FDA-Public Use
  Company Number: None

PATIENT
  Age: 56 Year
  Sex: Female

DRUGS (1)
  1. METFORMIN [Suspect]
     Dosage: 1 TABLET
     Route: 048

REACTIONS (5)
  - No therapeutic response [None]
  - Malaise [None]
  - Joint swelling [None]
  - Local swelling [None]
  - Product physical issue [None]
